FAERS Safety Report 5076646-7 (Version None)
Quarter: 2006Q3

REPORT INFORMATION
  Report Type: 
  Country: None (occurrence: None)
  Receive Date: 20060810
  Receipt Date: 20060526
  Transmission Date: 20061208
  Serious: Yes (Hospitalization)
  Sender: FDA-Public Use
  Company Number: US-AMGEN-US180951

PATIENT
  Sex: Male
  Weight: 72.6 kg

DRUGS (16)
  1. EPOGEN [Suspect]
     Indication: DIALYSIS
  2. NEURONTIN [Concomitant]
     Route: 065
  3. RENAGEL [Concomitant]
     Route: 048
     Dates: start: 20060512
  4. ATACAND [Concomitant]
     Route: 065
  5. ASPIRIN ENTERIC COATED K.P. [Concomitant]
     Route: 065
     Dates: start: 20060512
  6. CLONIDINE [Concomitant]
     Dates: start: 20060512
  7. NIASPAN [Concomitant]
     Route: 065
     Dates: start: 20060512
  8. PREVACID [Concomitant]
     Route: 065
     Dates: start: 20060512
  9. NORVASC [Concomitant]
     Route: 065
  10. METOPROLOL TARTRATE [Concomitant]
     Route: 065
  11. LISINOPRIL [Concomitant]
     Route: 065
  12. COZAAR [Concomitant]
     Route: 065
  13. DILANTIN [Concomitant]
     Route: 048
     Dates: start: 20060106
  14. HYDROCODONE BITARTRATE [Concomitant]
     Route: 065
     Dates: start: 20060106
  15. SENSIPAR [Concomitant]
     Route: 048
     Dates: start: 20060106, end: 20060501
  16. QUININE SULFATE [Concomitant]
     Route: 048
     Dates: start: 20060106

REACTIONS (3)
  - HAEMOGLOBIN DECREASED [None]
  - SEPSIS [None]
  - WOUND [None]
